FAERS Safety Report 20827681 (Version 1)
Quarter: 2022Q2

REPORT INFORMATION
  Report Type: Report from Study
  Country: US (occurrence: None)
  Receive Date: 20220513
  Receipt Date: 20220513
  Transmission Date: 20220721
  Serious: Yes (Hospitalization)
  Sender: FDA-Public Use
  Company Number: US-ROCHE-3093823

PATIENT
  Age: 63 Year
  Sex: Female

DRUGS (9)
  1. BEVACIZUMAB [Suspect]
     Active Substance: BEVACIZUMAB
     Indication: Ovarian epithelial cancer
     Dosage: LAST DATE OF ADMINISTRATION 12/JUL/2011
     Route: 042
     Dates: start: 20110829
  2. BEVACIZUMAB [Suspect]
     Active Substance: BEVACIZUMAB
     Indication: Malignant peritoneal neoplasm
  3. BEVACIZUMAB [Suspect]
     Active Substance: BEVACIZUMAB
     Indication: Fallopian tube cancer
  4. PACLITAXEL [Suspect]
     Active Substance: PACLITAXEL
     Indication: Ovarian epithelial cancer
     Route: 042
     Dates: start: 20110829
  5. PACLITAXEL [Suspect]
     Active Substance: PACLITAXEL
     Indication: Malignant peritoneal neoplasm
  6. PACLITAXEL [Suspect]
     Active Substance: PACLITAXEL
     Indication: Fallopian tube cancer
  7. CARBOPLATIN [Suspect]
     Active Substance: CARBOPLATIN
     Indication: Ovarian epithelial cancer
     Dosage: AUC=6
     Route: 042
     Dates: start: 20110829
  8. CARBOPLATIN [Suspect]
     Active Substance: CARBOPLATIN
     Indication: Malignant peritoneal neoplasm
  9. CARBOPLATIN [Suspect]
     Active Substance: CARBOPLATIN
     Indication: Fallopian tube cancer

REACTIONS (6)
  - Anaemia [Unknown]
  - Device related infection [Unknown]
  - Dehydration [Unknown]
  - Platelet count decreased [Unknown]
  - Syncope [Unknown]
  - Embolism [Unknown]

NARRATIVE: CASE EVENT DATE: 20111128
